FAERS Safety Report 9846841 (Version 1)
Quarter: 2013Q4

REPORT INFORMATION
  Report Type: Spontaneous
  Country: US (occurrence: None)
  Receive Date: 20131219
  Receipt Date: 20131219
  Transmission Date: 20140711
  Serious: Yes (Hospitalization, Other)
  Sender: FDA-Public Use
  Company Number: 163-20785-13071464

PATIENT
  Age: 73 Year
  Sex: Male

DRUGS (3)
  1. THALIDOMID [Suspect]
     Indication: MYELOFIBROSIS
     Route: 048
     Dates: start: 20130514
  2. BLOOD TRANSFUSION (BLOOD AND RELATED PRODUCTS) (UNKNOWN) [Concomitant]
  3. INSULIN (INSULIN ) [Concomitant]

REACTIONS (1)
  - Asthenia [None]
